FAERS Safety Report 4551523-6 (Version None)
Quarter: 2005Q1

REPORT INFORMATION
  Report Type: 
  Country: None (occurrence: None)
  Receive Date: 20050111
  Receipt Date: 20041229
  Transmission Date: 20050727
  Serious: Yes (Death)
  Sender: FDA-Public Use
  Company Number: 2004AP02886

PATIENT
  Age: 78 Year
  Sex: Female

DRUGS (1)
  1. ACCOLATE [Suspect]
     Dosage: 40 MG DAILY PO
     Route: 048
     Dates: start: 20011123

REACTIONS (7)
  - LIVER FUNCTION TEST ABNORMAL [None]
  - METASTATIC NEOPLASM [None]
  - PANCREATIC CARCINOMA [None]
  - PERITONITIS [None]
  - PNEUMONIA [None]
  - RENAL FAILURE ACUTE [None]
  - SEPSIS [None]
